FAERS Safety Report 7276551-1 (Version None)
Quarter: 2011Q1

REPORT INFORMATION
  Report Type: 
  Country: None (occurrence: None)
  Receive Date: 20110204
  Receipt Date: 20110127
  Transmission Date: 20110831
  Serious: Yes (Hospitalization, Other)
  Sender: FDA-Public Use
  Company Number: US-ABBOTT-11P-163-0702486-00

PATIENT
  Sex: Female
  Weight: 48.124 kg

DRUGS (10)
  1. LYRICA [Suspect]
     Indication: NERVE INJURY
     Route: 048
  2. FUROSEMIDE [Concomitant]
     Indication: PRODUCT USED FOR UNKNOWN INDICATION
  3. CARVEDILOL [Concomitant]
     Indication: PRODUCT USED FOR UNKNOWN INDICATION
  4. TRICOR [Suspect]
     Indication: PRODUCT USED FOR UNKNOWN INDICATION
  5. POTASSIUM CHLORIDE [Concomitant]
     Indication: PRODUCT USED FOR UNKNOWN INDICATION
  6. BENADRYL [Suspect]
     Indication: PRODUCT USED FOR UNKNOWN INDICATION
  7. CRESTOR [Suspect]
     Indication: PRODUCT USED FOR UNKNOWN INDICATION
  8. LYRICA [Suspect]
     Route: 048
  9. LEVOTHYROXINE [Concomitant]
     Indication: PRODUCT USED FOR UNKNOWN INDICATION
  10. OXYCONTIN [Concomitant]
     Indication: PRODUCT USED FOR UNKNOWN INDICATION

REACTIONS (11)
  - ERYTHEMA [None]
  - EYE DISORDER [None]
  - MUSCLE SPASMS [None]
  - CALCINOSIS [None]
  - SOMNOLENCE [None]
  - HEADACHE [None]
  - RASH GENERALISED [None]
  - ALLERGY TO CHEMICALS [None]
  - ASTHENIA [None]
  - PAIN IN EXTREMITY [None]
  - FATIGUE [None]
